FAERS Safety Report 21901484 (Version 2)
Quarter: 2023Q1

REPORT INFORMATION
  Report Type: Spontaneous
  Country: US (occurrence: US)
  Receive Date: 20230123
  Receipt Date: 20230324
  Transmission Date: 20230418
  Serious: No
  Sender: FDA-Public Use
  Company Number: US-AMGEN-USASP2023011364

PATIENT
  Age: 67 Year
  Sex: Female
  Weight: 88.617 kg

DRUGS (3)
  1. PROCRIT [Suspect]
     Active Substance: ERYTHROPOIETIN
     Indication: Chronic kidney disease
     Dosage: 30000 INTERNATIONAL UNIT
     Route: 065
     Dates: start: 20191120, end: 20230119
  2. PROCRIT [Suspect]
     Active Substance: ERYTHROPOIETIN
     Dosage: 40000 INTERNATIONAL UNIT
     Route: 065
  3. PROCRIT [Suspect]
     Active Substance: ERYTHROPOIETIN
     Dosage: 20000 INTERNATIONAL UNIT
     Route: 065

REACTIONS (2)
  - Drug ineffective [Unknown]
  - Product communication issue [Unknown]

NARRATIVE: CASE EVENT DATE: 20221209
